FAERS Safety Report 5610661-7 (Version None)
Quarter: 2008Q1

REPORT INFORMATION
  Report Type: 
  Country: None (occurrence: None)
  Receive Date: 20080111
  Receipt Date: 20071109
  Transmission Date: 20080703
  Serious: Yes (Other)
  Sender: FDA-Public Use
  Company Number: HQWYE213403NOV04

PATIENT
  Age: 51 Year
  Sex: Female

DRUGS (5)
  1. PREMPRO [Suspect]
  2. ESTRACE [Suspect]
  3. PREMARIN [Suspect]
  4. PROGESTERONE [Suspect]
  5. PROVERA [Suspect]

REACTIONS (2)
  - BREAST CANCER [None]
  - HEPATOSPLENOMEGALY [None]
